FAERS Safety Report 6839448-4 (Version None)
Quarter: 2010Q3

REPORT INFORMATION
  Report Type: 
  Country: None (occurrence: None)
  Receive Date: 20100714
  Receipt Date: 20090528
  Transmission Date: 20110219
  Serious: No
  Sender: FDA-Public Use
  Company Number: A0787109A

PATIENT
  Sex: Male

DRUGS (1)
  1. FLOVENT [Suspect]
     Indication: PRODUCT USED FOR UNKNOWN INDICATION
     Dosage: 220MCG TWICE PER DAY
     Route: 055
     Dates: start: 20090527

REACTIONS (1)
  - COUGH [None]
